FAERS Safety Report 7528791-1 (Version None)
Quarter: 2011Q2

REPORT INFORMATION
  Report Type: 
  Country: None (occurrence: None)
  Receive Date: 20110607
  Receipt Date: 20100706
  Transmission Date: 20111010
  Serious: No
  Sender: FDA-Public Use
  Company Number: US-ASTRAZENECA-2010SE31966

PATIENT
  Sex: Female

DRUGS (7)
  1. BLOOD PRESSURE MEDICATION [Concomitant]
  2. ANTIBIOTICS [Concomitant]
     Indication: ACNE
  3. HYPOTHYROIDISM MEDICATION [Concomitant]
  4. PRILOSEC OTC [Suspect]
     Indication: DYSPEPSIA
     Dosage: 1 TABLET, EVERY DAY FOR 7 DAYS.
     Route: 048
     Dates: start: 20100530, end: 20100605
  5. FIBROMYALGIA MEDICATION [Concomitant]
  6. DIURETICS [Concomitant]
     Indication: FLUID RETENTION
  7. ARTHRITIS MEDICATION [Concomitant]

REACTIONS (3)
  - DIARRHOEA [None]
  - HAEMATOCHEZIA [None]
  - BLOOD URINE PRESENT [None]
